FAERS Safety Report 4675141-4 (Version None)
Quarter: 2005Q2

REPORT INFORMATION
  Report Type: 
  Country: None (occurrence: None)
  Receive Date: 20050526
  Receipt Date: 20050511
  Transmission Date: 20051028
  Serious: Yes (Hospitalization)
  Sender: FDA-Public Use
  Company Number: 2005BI006152

PATIENT
  Age: 49 Year
  Sex: Female

DRUGS (16)
  1. AVONEX [Suspect]
     Indication: MULTIPLE SCLEROSIS
     Dosage: 30 UG; QW; IM
     Route: 030
     Dates: start: 20001109, end: 20030901
  2. AVONEX [Suspect]
     Indication: MULTIPLE SCLEROSIS
     Dosage: 30 UG; QW; IM
     Route: 030
     Dates: start: 20030929
  3. PRENATAL VITAMINS [Concomitant]
  4. TRAZODONE [Concomitant]
  5. NORVASC [Concomitant]
  6. ATENOLOL [Concomitant]
  7. DURAGESIC-100 [Concomitant]
  8. BEXTRA [Concomitant]
  9. ZYRTEC [Concomitant]
  10. LAMICTAL [Concomitant]
  11. PAXIL [Concomitant]
  12. DITROPAN [Concomitant]
  13. FOSAMAX [Concomitant]
  14. LINDODERM PATCHES [Concomitant]
  15. PROVIGIL [Concomitant]
  16. HYDROCODINE [Concomitant]

REACTIONS (3)
  - CATHETER RELATED INFECTION [None]
  - CYSTITIS [None]
  - NEUROGENIC BLADDER [None]
